FAERS Safety Report 17719829 (Version 2)
Quarter: 2020Q2

REPORT INFORMATION
  Report Type: Spontaneous
  Country: ES (occurrence: ES)
  Receive Date: 20200428
  Receipt Date: 20200508
  Transmission Date: 20200714
  Serious: Yes (Other)
  Sender: FDA-Public Use
  Company Number: ES-MYLANLABS-2020M1041838

PATIENT
  Age: 58 Year
  Sex: Male

DRUGS (5)
  1. AMIKACIN. [Concomitant]
     Active Substance: AMIKACIN
     Dosage: UNK
  2. IMIPENEM [Concomitant]
     Active Substance: IMIPENEM
     Dosage: UNK
  3. MEROPENEM. [Suspect]
     Active Substance: MEROPENEM
     Indication: INFECTION
     Dosage: UNK
     Dates: start: 20200211
  4. LINEZOLID. [Suspect]
     Active Substance: LINEZOLID
     Indication: INFECTION
     Dosage: UNK
     Dates: start: 20200211, end: 20200217
  5. SOLTRIM [Concomitant]
     Active Substance: SULFAMETHOXAZOLE\TRIMETHOPRIM
     Dosage: UNK

REACTIONS (5)
  - Vascular pseudoaneurysm [Unknown]
  - Shock haemorrhagic [Unknown]
  - Organ failure [Recovered/Resolved]
  - Hepatic haemorrhage [Unknown]
  - Thrombocytopenia [Recovered/Resolved]

NARRATIVE: CASE EVENT DATE: 20200211
